FAERS Safety Report 4712905-2 (Version None)
Quarter: 2005Q3

REPORT INFORMATION
  Report Type: 
  Country: None (occurrence: None)
  Receive Date: 20050713
  Receipt Date: 20050330
  Transmission Date: 20060218
  Serious: Yes (Disabling)
  Sender: FDA-Public Use
  Company Number: SE-BRISTOL-MYERS SQUIBB COMPANY-12916243

PATIENT
  Age: 74 Year
  Sex: Female

DRUGS (6)
  1. TAXOL [Suspect]
     Indication: BREAST CANCER METASTATIC
     Route: 042
     Dates: start: 20050308, end: 20050308
  2. FUROSEMIDE [Concomitant]
  3. SPIRONOLAKTON [Concomitant]
  4. LORATADINE [Concomitant]
  5. ARTROX [Concomitant]
  6. ACETAMINOPHEN [Concomitant]

REACTIONS (1)
  - VOCAL CORD PARESIS [None]
